FAERS Safety Report 9388028 (Version 2)
Quarter: 2013Q3

REPORT INFORMATION
  Report Type: Spontaneous
  Country: US (occurrence: None)
  Receive Date: 20130701
  Receipt Date: 20130802
  Transmission Date: 20140515
  Serious: Yes (Disabling, Other)
  Sender: FDA-Public Use
  Company Number: ACO_36947_2013

PATIENT
  Age: 50 Year
  Sex: Female
  Weight: 42.6 kg

DRUGS (5)
  1. AMPYRA [Suspect]
     Indication: GAIT DISTURBANCE
     Route: 048
     Dates: start: 2010, end: 20130612
  2. AMPYRA [Suspect]
     Indication: MULTIPLE SCLEROSIS
     Route: 048
     Dates: start: 2010, end: 20130612
  3. ALENDRONATE (ALENDRONATE SODIUM) [Concomitant]
  4. TYLENOL EXTRA STRENGTH (PARACETAMOL) [Concomitant]
  5. NUEDEXTA (DEXTROMETHORPHAN HYDROBROMIDE, QUINIDINE SULFATE) [Concomitant]

REACTIONS (4)
  - Monoplegia [None]
  - Hemiparesis [None]
  - Gait disturbance [None]
  - Multiple sclerosis relapse [None]
